FAERS Safety Report 8783460 (Version 2)
Quarter: 2012Q4

REPORT INFORMATION
  Report Type: 
  Country: GB (occurrence: GB)
  Receive Date: 20120913
  Receipt Date: 20120927
  Transmission Date: 20130627
  Serious: Yes (Hospitalization)
  Sender: FDA-Public Use
  Company Number: PHHO2012GB013211

PATIENT
  Age: 74 Year
  Sex: Female
  Weight: 68.3 kg

DRUGS (9)
  1. PROPRANOLOL [Suspect]
     Indication: HYPERTENSION
     Dosage: 40 mg, BID
     Route: 048
     Dates: start: 2009, end: 20120907
  2. DOXAZOSIN [Suspect]
     Indication: HYPERTENSION
     Dosage: 4 mg, BID
     Route: 048
     Dates: start: 2009, end: 20120907
  3. NIFEDIPINE [Suspect]
     Indication: HYPERTENSION
     Dosage: 90 mg, QD
     Route: 048
     Dates: start: 2009, end: 20120907
  4. BHQ880 [Suspect]
     Indication: MULTIPLE MYELOMA
     Dosage: 700 mg, QD
     Route: 042
     Dates: start: 20120807
  5. BHQ880 [Suspect]
     Indication: RENAL FAILURE
  6. BORTEZOMIB [Suspect]
     Indication: MULTIPLE MYELOMA
     Dosage: 2.1 mg, QD
     Route: 042
     Dates: start: 20120807, end: 20120904
  7. BORTEZOMIB [Suspect]
     Indication: RENAL FAILURE
  8. DEXAMETHASONE [Suspect]
     Indication: MULTIPLE MYELOMA
     Dosage: 20 mg, QD
     Route: 048
     Dates: start: 20120807
  9. DEXAMETHASONE [Suspect]
     Indication: RENAL FAILURE

REACTIONS (1)
  - Renal failure acute [Recovering/Resolving]
